FAERS Safety Report 9791341 (Version 1)
Quarter: 2014Q1

REPORT INFORMATION
  Report Type: Spontaneous
  Country: US (occurrence: US)
  Receive Date: 20140101
  Receipt Date: 20140101
  Transmission Date: 20141002
  Serious: Yes (Other)
  Sender: FDA-Public Use
  Company Number: US-GE HEALTHCARE MEDICAL DIAGNOSTICS-VISP-PR-1312S-1006

PATIENT
  Sex: 0

DRUGS (2)
  1. VISIPAQUE [Suspect]
     Indication: PRODUCT USED FOR UNKNOWN INDICATION
     Route: 042
     Dates: start: 20131223, end: 20131223
  2. VISIPAQUE [Suspect]
     Indication: DIAGNOSTIC PROCEDURE

REACTIONS (2)
  - Pruritus [Recovered/Resolved]
  - Urticaria [Recovered/Resolved]
